FAERS Safety Report 9422939 (Version 1)
Quarter: 2013Q3

REPORT INFORMATION
  Report Type: Report from Study
  Country: US (occurrence: US)
  Receive Date: 20130726
  Receipt Date: 20130726
  Transmission Date: 20140515
  Serious: Yes (Other)
  Sender: FDA-Public Use
  Company Number: US-JNJFOC-20130712501

PATIENT
  Age: 50 Year
  Sex: Male
  Weight: 120.2 kg

DRUGS (9)
  1. REMICADE [Suspect]
     Indication: PSORIATIC ARTHROPATHY
     Route: 042
     Dates: start: 201303, end: 201305
  2. METOPROLOL [Concomitant]
     Indication: BLOOD PRESSURE
     Route: 048
     Dates: start: 2010
  3. METFORMIN [Concomitant]
     Indication: DIABETES MELLITUS
     Route: 048
     Dates: start: 2010
  4. GABAPENTINE [Concomitant]
     Indication: SLEEP DISORDER
     Route: 048
     Dates: start: 2010
  5. SIMVASTATIN [Concomitant]
     Indication: BLOOD CHOLESTEROL
     Route: 048
     Dates: start: 2010
  6. HYDROCODONE-ACETAMINOPHEN [Concomitant]
     Indication: PROCEDURAL PAIN
     Dosage: 10MG-325MG/AS NEEDED
     Route: 048
     Dates: start: 2009
  7. CYCLOBENZAPRINE [Concomitant]
     Indication: TEMPOROMANDIBULAR JOINT SYNDROME
     Route: 048
     Dates: start: 2010
  8. PRILOSEC [Concomitant]
     Indication: GASTROOESOPHAGEAL REFLUX DISEASE
     Route: 048
     Dates: start: 2010
  9. VITAMIN D [Concomitant]
     Route: 065

REACTIONS (4)
  - Psoriasis [Not Recovered/Not Resolved]
  - Tooth fracture [Recovered/Resolved]
  - Therapeutic response decreased [Not Recovered/Not Resolved]
  - Tooth infection [Recovered/Resolved]
